FAERS Safety Report 21561701 (Version 1)
Quarter: 2022Q4

REPORT INFORMATION
  Report Type: Spontaneous
  Country: CN (occurrence: None)
  Receive Date: 20221107
  Receipt Date: 20221107
  Transmission Date: 20230112
  Serious: Yes (Hospitalization, Other)
  Sender: FDA-Public Use
  Company Number: 2022A366497

PATIENT
  Age: 61 Year
  Sex: Female
  Weight: 65 kg

DRUGS (8)
  1. DAPAGLIFLOZIN [Interacting]
     Active Substance: DAPAGLIFLOZIN
     Indication: Cardiac failure
     Route: 048
  2. DAPAGLIFLOZIN [Interacting]
     Active Substance: DAPAGLIFLOZIN
     Indication: Type 2 diabetes mellitus
     Route: 048
  3. LINEZOLID [Interacting]
     Active Substance: LINEZOLID
     Indication: Urinary tract infection
     Route: 042
  4. VALSARTAN [Concomitant]
     Active Substance: VALSARTAN
  5. METOPROLOL [Concomitant]
     Active Substance: METOPROLOL
  6. TORSEMIDE [Concomitant]
     Active Substance: TORSEMIDE
     Route: 042
  7. MILRINONE [Concomitant]
     Active Substance: MILRINONE
  8. CEFTIZOXIME [Concomitant]
     Active Substance: CEFTIZOXIME
     Indication: Urinary tract infection

REACTIONS (2)
  - Pancytopenia [Not Recovered/Not Resolved]
  - Drug interaction [Unknown]
